FAERS Safety Report 6342103-0 (Version None)
Quarter: 2009Q3

REPORT INFORMATION
  Report Type: 
  Country: None (occurrence: None)
  Receive Date: 20090903
  Receipt Date: 20090903
  Transmission Date: 20100115
  Serious: Yes (Hospitalization)
  Sender: FDA-Public Use
  Company Number: None

PATIENT
  Age: 45 Year
  Sex: Female
  Weight: 53.6 kg

DRUGS (2)
  1. SOLIRIS [Suspect]
     Dosage: 1200 MG TWICE IV; 600 MG TWICE IV
     Route: 042
     Dates: start: 20090813, end: 20090814
  2. SOLIRIS [Suspect]
     Dosage: 600 MG TWICE IV
     Route: 042
     Dates: start: 20090820, end: 20090827

REACTIONS (1)
  - INTESTINAL PERFORATION [None]
